FAERS Safety Report 5974838-3 (Version None)
Quarter: 2008Q4

REPORT INFORMATION
  Report Type: 
  Country: None (occurrence: None)
  Receive Date: 20081201
  Receipt Date: 20081120
  Transmission Date: 20090506
  Serious: Yes (Life-Threatening)
  Sender: FDA-Public Use
  Company Number: JP-PFIZER INC-2008100627

PATIENT
  Age: 65 Year
  Sex: Male

DRUGS (4)
  1. IRINOTECAN HCL [Suspect]
     Indication: GASTRIC CANCER
     Route: 042
  2. IRINOTECAN HCL [Suspect]
  3. WARFARIN SODIUM [Concomitant]
  4. ASPIRIN [Concomitant]

REACTIONS (2)
  - ILEITIS [None]
  - INTESTINAL ISCHAEMIA [None]
